FAERS Safety Report 23756980 (Version 2)
Quarter: 2024Q3

REPORT INFORMATION
  Report Type: Spontaneous
  Country: GB (occurrence: GB)
  Receive Date: 20240418
  Receipt Date: 20240704
  Transmission Date: 20241017
  Serious: Yes (Death, Other)
  Sender: PFIZER
  Company Number: GB-002147023-NVSC2024GB062077

PATIENT
  Age: 59 Year
  Sex: Male

DRUGS (3)
  1. METHYLPREDNISOLONE [Suspect]
     Active Substance: METHYLPREDNISOLONE
     Dosage: 5 DAYS COURSE OF METHYL PREDNISOLONE COMPLETED
     Route: 065
  2. RUXOLITINIB [Suspect]
     Active Substance: RUXOLITINIB
     Indication: Myelofibrosis
     Dosage: 10 MG, BID
     Route: 048
     Dates: start: 202006
  3. RUXOLITINIB [Suspect]
     Active Substance: RUXOLITINIB
     Dosage: 5 MG, BID
     Route: 065
     Dates: start: 202009, end: 202312

REACTIONS (18)
  - Brain stem infarction [Fatal]
  - Central nervous system immune reconstitution inflammatory response [Fatal]
  - Progressive multifocal leukoencephalopathy [Fatal]
  - Aphasia [Fatal]
  - Dysarthria [Fatal]
  - Dysphagia [Fatal]
  - Asthenia [Fatal]
  - Ataxia [Fatal]
  - JC virus infection [Unknown]
  - Mycobacterium avium complex infection [Unknown]
  - Anaemia [Unknown]
  - Overchelation [Unknown]
  - Iron overload [Unknown]
  - Alanine aminotransferase increased [Unknown]
  - Phaeochromocytoma [Unknown]
  - Cognitive disorder [Unknown]
  - Personality change [Unknown]
  - Clumsiness [Unknown]

NARRATIVE: CASE EVENT DATE: 20210101
